FAERS Safety Report 7668876-2 (Version None)
Quarter: 2011Q3

REPORT INFORMATION
  Report Type: 
  Country: None (occurrence: None)
  Receive Date: 20110808
  Receipt Date: 20110803
  Transmission Date: 20111222
  Serious: Yes (Hospitalization, Other)
  Sender: FDA-Public Use
  Company Number: US-PFIZER INC-2011177497

PATIENT
  Age: 86 Year
  Sex: Female

DRUGS (2)
  1. CLONIDINE [Concomitant]
     Dosage: 0.1 MG, 3X/DAY
     Route: 048
  2. PROCARDIA [Suspect]
     Dosage: UNK

REACTIONS (5)
  - MENINGIOMA BENIGN [None]
  - GAIT DISTURBANCE [None]
  - VISUAL IMPAIRMENT [None]
  - HYPERTENSIVE CRISIS [None]
  - ANXIETY [None]
